FAERS Safety Report 6468557-7 (Version None)
Quarter: 2009Q4

REPORT INFORMATION
  Report Type: 
  Country: None (occurrence: None)
  Receive Date: 20091201
  Receipt Date: 20091116
  Transmission Date: 20100525
  Serious: Yes (Other)
  Sender: FDA-Public Use
  Company Number: 8027833

PATIENT
  Age: 54 Year
  Sex: Female
  Weight: 65.8 kg

DRUGS (11)
  1. KEPPRA [Suspect]
     Indication: CONVULSION
     Dosage: 1000 MG 2 D PO
     Route: 048
     Dates: start: 20070522, end: 20070813
  2. KEPPRA [Suspect]
     Indication: CONVULSION
     Dosage: 1500 MG PO
     Route: 048
     Dates: start: 20070813, end: 20070828
  3. KEPPRA [Suspect]
     Indication: CONVULSION
     Dosage: 500 MG D PO
     Route: 048
     Dates: start: 20070828, end: 20070913
  4. KEPPRA [Suspect]
     Indication: CONVULSION
     Dosage: 500 MG 2 D PO
     Route: 048
     Dates: start: 20070913, end: 20071102
  5. KEPPRA [Suspect]
     Indication: CONVULSION
     Dosage: 750 MG 2 D PO
     Route: 048
     Dates: start: 20071102
  6. LAMICTAL [Suspect]
     Indication: CONVULSION
     Dosage: 100 MG 2 D PO
     Route: 048
  7. LAMICTAL [Suspect]
     Indication: CONVULSION
     Dosage: 150 MG PO
     Route: 048
     Dates: start: 20070913, end: 20071102
  8. LAMICTAL [Suspect]
     Indication: CONVULSION
     Dosage: 50 MG 2 D PO
     Route: 048
     Dates: start: 20071102
  9. CLOBAZAM [Concomitant]
  10. LEVOTHYROXINE SODIUM [Concomitant]
  11. FERROUS SULFATE TAB [Concomitant]

REACTIONS (2)
  - NEUTROPENIA [None]
  - WHITE BLOOD CELL COUNT DECREASED [None]
